FAERS Safety Report 13076254 (Version 3)
Quarter: 2017Q1

REPORT INFORMATION
  Report Type: Spontaneous
  Country: IE (occurrence: IE)
  Receive Date: 20161230
  Receipt Date: 20170116
  Transmission Date: 20170428
  Serious: Yes (Other)
  Sender: FDA-Public Use
  Company Number: IE-GILEAD-2016-0251334

PATIENT
  Age: 85 Year
  Sex: Female

DRUGS (4)
  1. WARFARIN [Concomitant]
     Active Substance: WARFARIN
  2. BUMETANIDE. [Concomitant]
     Active Substance: BUMETANIDE
  3. RANOLAZINE [Suspect]
     Active Substance: RANOLAZINE
     Indication: ATRIAL FIBRILLATION
     Route: 065
     Dates: start: 2015, end: 201611
  4. DIGOXIN. [Concomitant]
     Active Substance: DIGOXIN

REACTIONS (2)
  - Off label use [Recovered/Resolved]
  - Muscular weakness [Not Recovered/Not Resolved]

NARRATIVE: CASE EVENT DATE: 2015
